FAERS Safety Report 4788702-9 (Version None)
Quarter: 2005Q3

REPORT INFORMATION
  Report Type: 
  Country: None (occurrence: None)
  Receive Date: 20050928
  Receipt Date: 20050420
  Transmission Date: 20060218
  Serious: No
  Sender: FDA-Public Use
  Company Number: MK200504-0218-1

PATIENT
  Age: 52 Year
  Sex: Female

DRUGS (1)
  1. CONRAY 30 [Suspect]
     Indication: CATHETER PLACEMENT
     Dosage: 5-10CC, IT, ONCE
     Route: 037
     Dates: start: 20041001, end: 20041001

REACTIONS (4)
  - DYSGEUSIA [None]
  - MEDICATION ERROR [None]
  - MUSCLE RIGIDITY [None]
  - PARALYSIS [None]
